FAERS Safety Report 5227250-9 (Version None)
Quarter: 2007Q1

REPORT INFORMATION
  Report Type: 
  Country: None (occurrence: None)
  Receive Date: 20070202
  Receipt Date: 20070126
  Transmission Date: 20070707
  Serious: Yes (Death)
  Sender: FDA-Public Use
  Company Number: ES-AVENTIS-200710501GDDC

PATIENT
  Age: 76 Year
  Sex: Female

DRUGS (2)
  1. DOCETAXEL [Suspect]
     Route: 042
     Dates: start: 20060905
  2. BLINDED BEVACIZUMAB [Suspect]
     Route: 042
     Dates: start: 20060905

REACTIONS (2)
  - FEBRILE NEUTROPENIA [None]
  - PYREXIA [None]
